FAERS Safety Report 23096426 (Version 1)
Quarter: 2023Q4

REPORT INFORMATION
  Report Type: Spontaneous
  Country: US (occurrence: None)
  Receive Date: 20231022
  Receipt Date: 20231022
  Transmission Date: 20240109
  Serious: Yes (Disabling)
  Sender: FDA-Public Use
  Company Number: None

PATIENT
  Age: 61 Year
  Sex: Female

DRUGS (9)
  1. OZEMPIC [Suspect]
     Active Substance: SEMAGLUTIDE
     Indication: Overweight
     Dosage: OTHER FREQUENCY : WEEKLY INJECTION;?
     Route: 058
     Dates: start: 20230620, end: 20230820
  2. Atorvistatin [Concomitant]
  3. ASPIRIN [Concomitant]
     Active Substance: ASPIRIN
  4. AMLODIPINE [Concomitant]
     Active Substance: AMLODIPINE BESYLATE
  5. UBRELVY [Concomitant]
     Active Substance: UBROGEPANT
  6. VITAMIN B12 [Concomitant]
     Active Substance: CYANOCOBALAMIN
  7. D [Concomitant]
  8. FISH OIL [Concomitant]
     Active Substance: FISH OIL
  9. COENZYME Q10 [Concomitant]
     Active Substance: DIETARY SUPPLEMENT\UBIDECARENONE

REACTIONS (4)
  - Lymph node pain [None]
  - Abnormal faeces [None]
  - Diarrhoea [None]
  - Lipid metabolism disorder [None]

NARRATIVE: CASE EVENT DATE: 20230815
